FAERS Safety Report 10044855 (Version 1)
Quarter: 2014Q1

REPORT INFORMATION
  Report Type: Spontaneous
  Country: DE (occurrence: DE)
  Receive Date: 20140328
  Receipt Date: 20140328
  Transmission Date: 20141002
  Serious: Yes (Hospitalization)
  Sender: FDA-Public Use
  Company Number: DE-ACTAVIS-2014-05583

PATIENT
  Age: 77 Year
  Sex: Male

DRUGS (5)
  1. VALSARTAN-ACTAVIS COMP [Suspect]
     Indication: HYPERTENSION
     Dosage: 80/12.5 MG, DAILY
     Route: 048
     Dates: start: 20140301, end: 20140302
  2. RAMIPRIL [Concomitant]
     Indication: PRODUCT USED FOR UNKNOWN INDICATION
     Dosage: 5 MG, BID (1/2-0-1/2)
  3. ASPIRIN PROTECT [Concomitant]
     Indication: PRODUCT USED FOR UNKNOWN INDICATION
     Dosage: 100 MG, DAILY (1-0-0)
  4. INEGY [Concomitant]
     Indication: PRODUCT USED FOR UNKNOWN INDICATION
     Dosage: 10/40 MG, DAILY (0-0-1)
  5. AMLODIPIN                          /00972401/ [Concomitant]
     Indication: PRODUCT USED FOR UNKNOWN INDICATION
     Dosage: 5 MG, BID (1-0-1)

REACTIONS (1)
  - Vertigo [Not Recovered/Not Resolved]
